FAERS Safety Report 17907739 (Version 2)
Quarter: 2020Q2

REPORT INFORMATION
  Report Type: Spontaneous
  Country: CH (occurrence: CH)
  Receive Date: 20200617
  Receipt Date: 20200619
  Transmission Date: 20200714
  Serious: Yes (Hospitalization, Other)
  Sender: FDA-Public Use
  Company Number: CH-PFIZER INC-2020232248

PATIENT
  Age: 43 Year
  Sex: Female

DRUGS (4)
  1. CAMPTO [Suspect]
     Active Substance: IRINOTECAN
     Indication: COLON CANCER
     Dosage: 250 MG (IN TOTAL, 165 MG/M2), CYCLIC
     Route: 041
     Dates: start: 20200323, end: 20200323
  2. CALCIUM FOLINATE [Interacting]
     Active Substance: LEUCOVORIN CALCIUM
     Indication: COLON CANCER
     Dosage: 30 MG (IN TOTAL), CYCLIC
     Route: 040
     Dates: start: 20200323, end: 20200323
  3. OXALIPLATIN. [Interacting]
     Active Substance: OXALIPLATIN
     Indication: COLON CANCER
     Dosage: 130 MG (IN TOTAL, 85 MG/M2), CYCLIC
     Route: 041
     Dates: start: 20200323, end: 20200323
  4. FLUOROURACIL. [Interacting]
     Active Substance: FLUOROURACIL
     Indication: COLON CANCER
     Dosage: 4900 MG (IN TOTAL, 3200 MG/M2 ), CYCLIC
     Route: 041
     Dates: start: 20200323, end: 20200325

REACTIONS (6)
  - Pyrexia [Recovered/Resolved]
  - Cognitive disorder [Unknown]
  - Agranulocytosis [Recovered/Resolved]
  - Drug interaction [Unknown]
  - Pancytopenia [Recovering/Resolving]
  - Pyrexia [Unknown]

NARRATIVE: CASE EVENT DATE: 20200323
